FAERS Safety Report 5738905-1 (Version None)
Quarter: 2008Q2

REPORT INFORMATION
  Report Type: 
  Country: None (occurrence: None)
  Receive Date: 20080515
  Receipt Date: 20080507
  Transmission Date: 20081010
  Serious: Yes (Life-Threatening, Hospitalization, Other)
  Sender: FDA-Public Use
  Company Number: US-ROCHE-433893

PATIENT
  Sex: Male
  Weight: 90.7 kg

DRUGS (8)
  1. ACCUTANE [Suspect]
     Indication: ACNE
     Route: 048
     Dates: start: 19840101, end: 19850101
  2. ACCUTANE [Suspect]
     Route: 048
     Dates: start: 19850101, end: 19870101
  3. ACCUTANE [Suspect]
     Dosage: INDICATION FOR USE CYSTIC ACNE.
     Route: 048
     Dates: end: 19880101
  4. CLEOCIN HYDROCHLORIDE [Concomitant]
     Indication: PSEUDOFOLLICULITIS BARBAE
     Route: 061
     Dates: start: 19841203
  5. HYTONE [Concomitant]
     Route: 061
     Dates: start: 19861124
  6. ERYMAX [Concomitant]
     Route: 048
     Dates: start: 19870818
  7. SEPTRA DS [Concomitant]
     Route: 048
     Dates: start: 19870818
  8. SEPTRA DS [Concomitant]
     Route: 048
     Dates: start: 19870818

REACTIONS (5)
  - DEPRESSION [None]
  - IGA NEPHROPATHY [None]
  - KIDNEY TRANSPLANT REJECTION [None]
  - RENAL DISORDER [None]
  - RENAL FAILURE CHRONIC [None]
